FAERS Safety Report 20527666 (Version 1)
Quarter: 2022Q1

REPORT INFORMATION
  Report Type: Spontaneous
  Country: US (occurrence: US)
  Receive Date: 20220228
  Receipt Date: 20220228
  Transmission Date: 20220423
  Serious: No
  Sender: FDA-Public Use
  Company Number: US-PERRIGO-21US029800

PATIENT
  Age: 81 Year
  Sex: Female
  Weight: 81.633 kg

DRUGS (3)
  1. ESTRADIOL [Suspect]
     Active Substance: ESTRADIOL
     Indication: Menopause
     Dosage: FINGERTIP, SINGLE
     Route: 067
     Dates: start: 20211017, end: 20211017
  2. ESTRADIOL [Suspect]
     Active Substance: ESTRADIOL
     Dosage: MORE THAN A FINGERTIP, SINGLE
     Route: 067
     Dates: start: 20211018, end: 20211018
  3. INSULIN NOS [Concomitant]
     Active Substance: INSULIN NOS
     Indication: Diabetes mellitus
     Dosage: 32 UNITS, UNKNOWN
     Route: 065
     Dates: start: 202109

REACTIONS (2)
  - Incorrect dose administered [Recovered/Resolved]
  - Wrong technique in product usage process [Recovered/Resolved]

NARRATIVE: CASE EVENT DATE: 20211017
